FAERS Safety Report 17109088 (Version 1)
Quarter: 2019Q4

REPORT INFORMATION
  Report Type: Report from Study
  Country: AT (occurrence: AT)
  Receive Date: 20191204
  Receipt Date: 20191204
  Transmission Date: 20200122
  Serious: Yes (Other)
  Sender: FDA-Public Use
  Company Number: AT-ROCHE-2481138

PATIENT
  Age: 43 Year
  Sex: Female
  Weight: 65 kg

DRUGS (17)
  1. NOVALGIN (METAMIZOLE SODIUM) [Concomitant]
     Active Substance: METAMIZOLE SODIUM
     Dosage: ONGOING = CHECKED
     Route: 065
     Dates: start: 20181023
  2. NEURONTIN [Concomitant]
     Active Substance: GABAPENTIN
     Dosage: ONGOING = CHECKED
     Route: 065
     Dates: start: 20181023
  3. TAXOL [Suspect]
     Active Substance: PACLITAXEL
     Indication: HER-2 POSITIVE BREAST CANCER
     Route: 042
     Dates: start: 20181017
  4. FORTECORTIN [DEXAMETHASONE] [Concomitant]
     Active Substance: DEXAMETHASONE
     Dosage: ONGOING = CHECKED
     Route: 065
     Dates: start: 20181017
  5. ASTEC [BUPRENORPHINE] [Concomitant]
     Dosage: ONGOING = CHECKED
     Route: 065
     Dates: start: 20181023
  6. ZOFRAN [Concomitant]
     Active Substance: ONDANSETRON HYDROCHLORIDE
     Dosage: ONGOING = CHECKED
     Route: 065
     Dates: start: 20181017
  7. PERTUZUMAB. [Suspect]
     Active Substance: PERTUZUMAB
     Indication: HER-2 POSITIVE BREAST CANCER
     Dosage: Q3W - EVERY 3 WEEKS
     Route: 042
     Dates: start: 20181016
  8. ZOFRAN [Concomitant]
     Active Substance: ONDANSETRON HYDROCHLORIDE
     Dosage: ONGOING = CHECKED
     Route: 065
     Dates: start: 20181023
  9. XGEVA [Suspect]
     Active Substance: DENOSUMAB
     Indication: HER-2 POSITIVE BREAST CANCER
     Dosage: Q4W - EVERY 4 WEEKS
     Route: 058
     Dates: start: 20190326
  10. TEMGESIC [Concomitant]
     Active Substance: BUPRENORPHINE HYDROCHLORIDE
     Dosage: ONGOING = CHECKED
     Route: 065
     Dates: start: 20181023
  11. PARACODIN [DIHYDROCODEINE] [Concomitant]
     Dosage: ONGOING = CHECKED
     Route: 065
     Dates: start: 20180715
  12. TRASTUZUMAB. [Suspect]
     Active Substance: TRASTUZUMAB
     Indication: HER-2 POSITIVE BREAST CANCER
     Dosage: Q3W - EVERY 3 WEEKS
     Route: 041
     Dates: start: 20181016
  13. DIBONDRIN [Concomitant]
     Active Substance: DIPHENHYDRAMINE HYDROCHLORIDE
     Dosage: ONGOING = CHECKED
     Route: 065
  14. ULSAL [Concomitant]
     Active Substance: RANITIDINE HYDROCHLORIDE
     Dosage: ONGOING = CHECKED
     Route: 065
     Dates: start: 20181017
  15. EMEND [Concomitant]
     Active Substance: APREPITANT
     Dosage: ONGOING = CHECKED
     Route: 065
     Dates: start: 20181120
  16. MOLAXOLE [Concomitant]
     Active Substance: POLYETHYLENE GLYCOL 3350\POTASSIUM CHLORIDE\SODIUM BICARBONATE\SODIUM CHLORIDE
     Dosage: ONGOING = CHECKED
     Route: 065
     Dates: start: 20181023
  17. PASPERTIN [METOCLOPRAMIDE HYDROCHLORIDE] [Concomitant]
     Active Substance: METOCLOPRAMIDE HYDROCHLORIDE
     Dosage: ONGOING = CHECKED
     Route: 065
     Dates: start: 20181023

REACTIONS (1)
  - Erysipelas [Recovered/Resolved]

NARRATIVE: CASE EVENT DATE: 20190925
